FAERS Safety Report 12527433 (Version 1)
Quarter: 2016Q3

REPORT INFORMATION
  Report Type: Spontaneous
  Country: ES (occurrence: ES)
  Receive Date: 20160705
  Receipt Date: 20160705
  Transmission Date: 20161109
  Serious: Yes (Death, Other)
  Sender: FDA-Public Use
  Company Number: ES-ELI_LILLY_AND_COMPANY-ES201607000192

PATIENT
  Age: 65 Year
  Sex: Female
  Weight: 46 kg

DRUGS (7)
  1. PACLITAX NAB [Suspect]
     Active Substance: PACLITAXEL
     Indication: METASTASES TO BONE
     Dosage: 50 MG/M2, CYCLICAL
     Route: 042
     Dates: start: 201311
  2. OXYCODONE [Concomitant]
     Active Substance: OXYCODONE
     Dosage: 5 MG, BID
     Route: 048
  3. GEMCITABINE HYDROCHLORIDE. [Suspect]
     Active Substance: GEMCITABINE HYDROCHLORIDE
     Dosage: 400 MG/M2, CYCLICAL
     Route: 042
     Dates: start: 201311
  4. TEGAFUR [Suspect]
     Active Substance: TEGAFUR
     Indication: ADENOCARCINOMA PANCREAS
     Dosage: 1200 MG, QD
     Dates: start: 201006
  5. GEMCITABINE HYDROCHLORIDE. [Suspect]
     Active Substance: GEMCITABINE HYDROCHLORIDE
     Indication: ADENOCARCINOMA PANCREAS
     Dosage: 1000 MG/M2, CYCLICAL
     Route: 042
     Dates: start: 201006
  6. PACLITAX NAB [Suspect]
     Active Substance: PACLITAXEL
     Indication: PULMONARY MASS
  7. OXYCODONE [Concomitant]
     Active Substance: OXYCODONE
     Indication: ANALGESIC THERAPY
     Dosage: 40 MG, BID
     Route: 048

REACTIONS (19)
  - Cholangitis acute [Unknown]
  - Biliary dilatation [Unknown]
  - Anaemia [Unknown]
  - Cholangitis acute [Fatal]
  - Neutropenia [Unknown]
  - Diabetes mellitus [Unknown]
  - Lymphopenia [Unknown]
  - Hepatotoxicity [Unknown]
  - Oedema peripheral [Unknown]
  - Pancreatic insufficiency [Unknown]
  - Diarrhoea [Unknown]
  - Vomiting [Unknown]
  - Cholangitis [Unknown]
  - Biliary tract disorder [Unknown]
  - Asthenia [Unknown]
  - Pyrexia [Unknown]
  - Asthenia [Unknown]
  - Anaemia [Unknown]
  - Enteritis [Unknown]

NARRATIVE: CASE EVENT DATE: 2010
